FAERS Safety Report 8157893-4 (Version None)
Quarter: 2012Q1

REPORT INFORMATION
  Report Type: 
  Country: None (occurrence: None)
  Receive Date: 20120222
  Receipt Date: 20120213
  Transmission Date: 20120608
  Serious: Yes (Hospitalization)
  Sender: FDA-Public Use
  Company Number: PHEH2012US000534

PATIENT

DRUGS (1)
  1. CLOZARIL [Suspect]
     Dates: start: 20100601

REACTIONS (2)
  - FALL [None]
  - JOINT INJURY [None]
